FAERS Safety Report 4840154-6 (Version None)
Quarter: 2005Q4

REPORT INFORMATION
  Report Type: 
  Country: None (occurrence: None)
  Receive Date: 20051125
  Receipt Date: 20051114
  Transmission Date: 20060501
  Serious: Yes (Other)
  Sender: FDA-Public Use
  Company Number: 2005154984

PATIENT
  Age: 50 Year
  Sex: Male
  Weight: 108.8633 kg

DRUGS (3)
  1. BENADRYL [Suspect]
     Indication: SLEEP DISORDER
     Dosage: 6 KAPSEALS TWICE DAILY, ORAL
     Route: 048
  2. VALPROATE SODIUM [Concomitant]
  3. FLUOXETINE HCL [Concomitant]

REACTIONS (1)
  - TREMOR [None]
